FAERS Safety Report 6809931-6 (Version None)
Quarter: 2010Q2

REPORT INFORMATION
  Report Type: 
  Country: None (occurrence: None)
  Receive Date: 20100630
  Receipt Date: 20100623
  Transmission Date: 20101027
  Serious: Yes (Other)
  Sender: FDA-Public Use
  Company Number: A0854604A

PATIENT
  Age: 62 Year
  Sex: Female

DRUGS (5)
  1. REQUIP XL [Suspect]
     Indication: PARKINSON'S DISEASE
     Dosage: 4MG SEE DOSAGE TEXT
     Route: 048
     Dates: start: 20080101
  2. REQUIP [Suspect]
     Indication: PARKINSON'S DISEASE
     Route: 048
     Dates: start: 20040101, end: 20080101
  3. CARBIDOPA AND LEVODOPA [Suspect]
     Indication: PARKINSON'S DISEASE
     Dosage: 1TAB FOUR TIMES PER DAY
     Route: 048
     Dates: start: 20020101
  4. COMTAN [Suspect]
     Indication: PARKINSON'S DISEASE
     Dosage: 200MG FOUR TIMES PER DAY
     Route: 065
     Dates: start: 20070101
  5. APOMORPHINE [Suspect]
     Indication: PARKINSON'S DISEASE
     Dosage: 3ML AS REQUIRED

REACTIONS (10)
  - ABASIA [None]
  - IMMOBILE [None]
  - INAPPROPRIATE SCHEDULE OF DRUG ADMINISTRATION [None]
  - INSOMNIA [None]
  - MUSCLE SPASMS [None]
  - MUSCULOSKELETAL STIFFNESS [None]
  - ON AND OFF PHENOMENON [None]
  - PAIN [None]
  - SLEEP DISORDER [None]
  - SOMNOLENCE [None]
